FAERS Safety Report 26068034 (Version 1)
Quarter: 2025Q4

REPORT INFORMATION
  Report Type: Spontaneous
  Country: JP (occurrence: JP)
  Receive Date: 20251120
  Receipt Date: 20251120
  Transmission Date: 20260117
  Serious: Yes (Hospitalization)
  Sender: AMGEN
  Company Number: JP-KYOWAKIRIN-2025KK021752

PATIENT
  Sex: Female

DRUGS (3)
  1. DARBEPOETIN ALFA [Suspect]
     Active Substance: DARBEPOETIN ALFA
     Indication: Product used for unknown indication
     Dosage: 120 UG, ONCE EVERY 2 MONTHS
     Route: 058
  2. DARBEPOETIN ALFA [Suspect]
     Active Substance: DARBEPOETIN ALFA
     Dosage: 120 UG, A DOSE WAS SKIPPED A MONTH, AND DARBEPOETIN WAS ADMINISTERED IN OCT
     Route: 058
     Dates: start: 202510, end: 202510
  3. DARBEPOETIN ALFA [Suspect]
     Active Substance: DARBEPOETIN ALFA
     Dosage: 60 UG, 1X/MONTH, THE PATIENT WAS PLANNED TO RECEIVE THE DRUG AT 60 MICROGRAMS MONTHLY AS AN OUTPATIE
     Route: 058

REACTIONS (5)
  - Hospitalisation [Unknown]
  - Off label use [Unknown]
  - Intentional dose omission [Unknown]
  - Off label use [Unknown]
  - Haemoglobin decreased [Unknown]
